FAERS Safety Report 9121425 (Version 1)
Quarter: 2013Q1

REPORT INFORMATION
  Report Type: Report from Study
  Country: US (occurrence: US)
  Receive Date: 20130225
  Receipt Date: 20130225
  Transmission Date: 20140127
  Serious: Yes (Hospitalization)
  Sender: FDA-Public Use
  Company Number: US-ROCHE-1193014

PATIENT
  Age: 70 Year
  Sex: Male
  Weight: 74.2 kg

DRUGS (11)
  1. BEVACIZUMAB [Suspect]
     Indication: NON-SMALL CELL LUNG CANCER
     Route: 065
     Dates: start: 20121116, end: 20130118
  2. CARBOPLATIN [Suspect]
     Indication: NON-SMALL CELL LUNG CANCER
     Dosage: AUC 6
     Route: 065
     Dates: start: 20121116, end: 20130118
  3. PEMETREXED [Suspect]
     Indication: NON-SMALL CELL LUNG CANCER
     Route: 065
     Dates: start: 20121116
  4. PEMETREXED [Suspect]
     Route: 065
     Dates: start: 20130208
  5. NORVASC [Concomitant]
  6. ASPIRIN ^BAYER^ [Concomitant]
     Route: 065
  7. DECADRON [Concomitant]
  8. METOPROLOL XL [Concomitant]
  9. ZOFRAN [Concomitant]
  10. COMPAZINE [Concomitant]
  11. VERAPAMIL [Concomitant]

REACTIONS (2)
  - Dehydration [Unknown]
  - Hypotension [Unknown]
